FAERS Safety Report 23853067 (Version 1)
Quarter: 2024Q2

REPORT INFORMATION
  Report Type: Spontaneous
  Country: CN (occurrence: CN)
  Receive Date: 20240514
  Receipt Date: 20240514
  Transmission Date: 20240716
  Serious: Yes (Other)
  Sender: FDA-Public Use
  Company Number: CN-PFIZER INC-PV202400062109

PATIENT
  Age: 57 Year
  Sex: Female
  Weight: 74 kg

DRUGS (3)
  1. EPIRUBICIN HYDROCHLORIDE [Suspect]
     Active Substance: EPIRUBICIN HYDROCHLORIDE
     Indication: Breast cancer female
     Dosage: 120 MG, ONCE EVERY 21 DAYS
     Route: 041
     Dates: start: 20240322, end: 20240507
  2. CYCLOPHOSPHAMIDE [Suspect]
     Active Substance: CYCLOPHOSPHAMIDE
     Indication: Breast cancer female
     Dosage: 800 MG, ONCE EVERY 21 DAYS
     Route: 041
     Dates: start: 20240322, end: 20240507
  3. SODIUM CHLORIDE [Concomitant]
     Active Substance: SODIUM CHLORIDE
     Indication: Vehicle solution use
     Dosage: 100 ML, ONCE EVERY 21 DAYS
     Route: 041
     Dates: start: 20240322, end: 20240507

REACTIONS (1)
  - Drug-induced liver injury [Recovering/Resolving]

NARRATIVE: CASE EVENT DATE: 20240506
